FAERS Safety Report 8405230-X (Version None)
Quarter: 2012Q2

REPORT INFORMATION
  Report Type: 
  Country: None (occurrence: None)
  Receive Date: 20120603
  Receipt Date: 20120525
  Transmission Date: 20120825
  Serious: Yes (Other)
  Sender: FDA-Public Use
  Company Number: JP-VERTEX PHARMACEUTICALS INC.-AE-2012-004267

PATIENT
  Age: 69 Year
  Sex: Male

DRUGS (9)
  1. TELAVIC (TELAPREVIR) [Suspect]
     Indication: HEPATITIS C
     Route: 048
     Dates: start: 20120315, end: 20120319
  2. REBETOL [Concomitant]
     Indication: HEPATITIS C
     Route: 048
     Dates: start: 20120315, end: 20120319
  3. LANSOPRAZOLE [Concomitant]
     Route: 017
     Dates: start: 20120318, end: 20120321
  4. URSO 250 [Concomitant]
     Route: 048
     Dates: end: 20120318
  5. HUMALOG [Concomitant]
     Route: 058
  6. LANTUS [Concomitant]
     Route: 058
  7. PEG-INTRON [Concomitant]
     Indication: HEPATITIS C
     Route: 058
     Dates: start: 20120315, end: 20120319
  8. OLMESARTAN MEDOXOMIL [Concomitant]
     Route: 048
     Dates: end: 20120318
  9. URSO 250 [Concomitant]
     Route: 048
     Dates: start: 20120321

REACTIONS (2)
  - HEPATIC ENCEPHALOPATHY [None]
  - RENAL IMPAIRMENT [None]
